FAERS Safety Report 11325071 (Version 4)
Quarter: 2016Q2

REPORT INFORMATION
  Report Type: Not Available
  Country: FR (occurrence: FR)
  Receive Date: 20150730
  Receipt Date: 20160523
  Transmission Date: 20160815
  Serious: Yes (Hospitalization)
  Sender: FDA-Public Use
  Company Number: FR-MUNDIPHARMA DS AND PHARMACOVIGILANCE-GBR-2015-0029879

PATIENT
  Age: 53 Year
  Sex: Female

DRUGS (14)
  1. ATARAX [Suspect]
     Active Substance: HYDROXYZINE\HYDROXYZINE HYDROCHLORIDE
     Indication: PRODUCT USED FOR UNKNOWN INDICATION
     Dosage: UNK
     Route: 048
     Dates: start: 20150611, end: 20150617
  2. OXYNORM [Suspect]
     Active Substance: OXYCODONE HYDROCHLORIDE
     Indication: PAIN
     Dosage: UNK
     Route: 048
     Dates: start: 20150613, end: 20150617
  3. FIBRINOGEN HUMAN [Suspect]
     Active Substance: FIBRINOGEN HUMAN
     Indication: HYPOFIBRINOGENAEMIA
     Dosage: 2 DF, DAILY
     Route: 042
     Dates: start: 20150617, end: 20150617
  4. PERFALGAN [Suspect]
     Active Substance: ACETAMINOPHEN
     Indication: PAIN
     Dosage: 1000 MG, TID
     Route: 042
     Dates: start: 20150612, end: 20150617
  5. VIALEBEX [Suspect]
     Active Substance: ALBUMIN HUMAN
     Indication: PRODUCT USED FOR UNKNOWN INDICATION
     Dosage: 3600 ML, DAILY
     Route: 042
     Dates: start: 20150617, end: 20150617
  6. VALIUM [Suspect]
     Active Substance: DIAZEPAM
     Indication: ASTHENIA
     Dosage: UNK
     Route: 048
     Dates: start: 20150608, end: 20150610
  7. VIALEBEX [Suspect]
     Active Substance: ALBUMIN HUMAN
     Dosage: 3600 ML, DAILY
     Route: 042
     Dates: start: 20150613, end: 20150613
  8. VIALEBEX [Suspect]
     Active Substance: ALBUMIN HUMAN
     Dosage: 3600 ML, DAILY
     Route: 042
     Dates: start: 20150612, end: 20150612
  9. FIBRINOGEN HUMAN [Suspect]
     Active Substance: FIBRINOGEN HUMAN
     Dosage: 1 DF, DAILY
     Route: 042
     Dates: start: 20150614, end: 20150614
  10. FIBRINOGEN HUMAN [Suspect]
     Active Substance: FIBRINOGEN HUMAN
     Dosage: 1 DF, DAILY
     Route: 042
     Dates: start: 20150612, end: 20150612
  11. ACUPAN [Suspect]
     Active Substance: NEFOPAM HYDROCHLORIDE
     Indication: PAIN
     Dosage: 20 MG, DAILY
     Route: 042
     Dates: start: 20150611, end: 20150617
  12. VIALEBEX [Suspect]
     Active Substance: ALBUMIN HUMAN
     Dosage: 3600 ML, DAILY
     Route: 042
     Dates: start: 20150615, end: 20150615
  13. FIBRINOGEN HUMAN [Suspect]
     Active Substance: FIBRINOGEN HUMAN
     Dosage: 1 DF, DAILY
     Route: 042
     Dates: start: 20150615, end: 20150615
  14. LAROXYL [Suspect]
     Active Substance: AMITRIPTYLINE
     Indication: NEURALGIA
     Dosage: 25 MG, DAILY
     Route: 042
     Dates: start: 20150612, end: 20150615

REACTIONS (1)
  - Hepatocellular injury [Recovered/Resolved]

NARRATIVE: CASE EVENT DATE: 20150615
